FAERS Safety Report 24208700 (Version 1)
Quarter: 2024Q3

REPORT INFORMATION
  Report Type: Spontaneous
  Country: CN (occurrence: CN)
  Receive Date: 20240814
  Receipt Date: 20240814
  Transmission Date: 20241016
  Serious: Yes (Hospitalization, Other)
  Sender: Unknown Manufacturer
  Company Number: CN-862174955-ML2024-04452

PATIENT
  Age: 47 Year
  Sex: Male

DRUGS (2)
  1. AMOXICILLIN [Suspect]
     Active Substance: AMOXICILLIN
     Indication: Product used for unknown indication
  2. URSODIOL [Concomitant]
     Active Substance: URSODIOL
     Indication: Product used for unknown indication

REACTIONS (4)
  - Vanishing bile duct syndrome [Unknown]
  - Biliary cirrhosis [Unknown]
  - Hepatic failure [Unknown]
  - Cholestasis [Unknown]
